FAERS Safety Report 21555255 (Version 4)
Quarter: 2022Q4

REPORT INFORMATION
  Report Type: Report from Study
  Country: TW (occurrence: None)
  Receive Date: 20221104
  Receipt Date: 20221205
  Transmission Date: 20230113
  Serious: Yes (Hospitalization)
  Sender: FDA-Public Use
  Company Number: TW-Eisai Medical Research-EC-2022-127245

PATIENT
  Age: 54 Year
  Sex: Male
  Weight: 42.9 kg

DRUGS (11)
  1. LENVATINIB [Suspect]
     Active Substance: LENVATINIB
     Indication: Clear cell renal cell carcinoma
     Dosage: STARTING DOSE AT 20 MG (FLUCTUATED DOSAGE)
     Route: 048
     Dates: start: 20220714, end: 20221005
  2. LENVATINIB [Suspect]
     Active Substance: LENVATINIB
     Route: 048
     Dates: start: 20221006, end: 20221026
  3. LENVATINIB [Suspect]
     Active Substance: LENVATINIB
     Route: 048
     Dates: start: 20221117
  4. QUAVONLIMAB [Suspect]
     Active Substance: QUAVONLIMAB
     Indication: Clear cell renal cell carcinoma
     Dosage: QUAVONLIMAB 25 MG + PEMBROLIZUMAB 400 MG
     Route: 042
     Dates: start: 20220714, end: 20220825
  5. PEMBROLIZUMAB [Suspect]
     Active Substance: PEMBROLIZUMAB
     Dosage: QUAVONLIMAB 25 MG + PEMBROLIZUMAB 400 MG
     Route: 042
     Dates: start: 20221006
  6. OXYCONTIN [Concomitant]
     Active Substance: OXYCODONE HYDROCHLORIDE
     Dates: start: 20220714, end: 20221027
  7. LEVACECARNINE HYDROCHLORIDE [Concomitant]
     Active Substance: LEVACECARNINE HYDROCHLORIDE
     Dates: start: 20220714, end: 20221027
  8. SILYMARINE [Concomitant]
     Dates: start: 20220811
  9. MEGESTROL ACETATE [Concomitant]
     Active Substance: MEGESTROL ACETATE
     Dates: start: 20220817
  10. ZOLPIDEM TARTRATE [Concomitant]
     Active Substance: ZOLPIDEM TARTRATE
     Dates: start: 20220825, end: 20221117
  11. PRIMPERAN [Concomitant]
     Active Substance: METOCLOPRAMIDE HYDROCHLORIDE
     Dates: start: 20220825, end: 20221027

REACTIONS (1)
  - Colitis [Not Recovered/Not Resolved]

NARRATIVE: CASE EVENT DATE: 20220927
